FAERS Safety Report 10608289 (Version 3)
Quarter: 2016Q2

REPORT INFORMATION
  Report Type: Spontaneous
  Country: JP (occurrence: JP)
  Receive Date: 20141125
  Receipt Date: 20160617
  Transmission Date: 20160815
  Serious: Yes (Death, Other)
  Sender: FDA-Public Use
  Company Number: JP-SA-2014SA157859

PATIENT
  Age: 80 Year
  Sex: Female

DRUGS (8)
  1. BEZAFIBRATE [Concomitant]
     Active Substance: BEZAFIBRATE
     Dosage: SLOW RELEASE TABLET
  2. CALCIUM LEVOFOLINATE [Suspect]
     Active Substance: LEVOLEUCOVORIN CALCIUM
     Indication: COLON CANCER
     Route: 041
  3. FLUOROURACIL. [Suspect]
     Active Substance: FLUOROURACIL
     Indication: COLON CANCER
     Route: 040
  4. ELPLAT [Suspect]
     Active Substance: OXALIPLATIN
     Indication: COLON CANCER
     Dosage: I.V. INFUSION SOLUTION
     Route: 041
  5. BETAMETHASONE. [Concomitant]
     Active Substance: BETAMETHASONE
  6. AVASTIN [Concomitant]
     Active Substance: BEVACIZUMAB
  7. TEPRENONE [Concomitant]
     Active Substance: TEPRENONE
  8. FLUOROURACIL. [Suspect]
     Active Substance: FLUOROURACIL
     Indication: COLON CANCER
     Dosage: ONCE IN TWO DAYS
     Route: 041

REACTIONS (2)
  - Kounis syndrome [Fatal]
  - Anaphylactic shock [Unknown]

NARRATIVE: CASE EVENT DATE: 20140129
